FAERS Safety Report 17613980 (Version 1)
Quarter: 2020Q2

REPORT INFORMATION
  Report Type: Spontaneous
  Country: IT (occurrence: IT)
  Receive Date: 20200402
  Receipt Date: 20200402
  Transmission Date: 20200713
  Serious: Yes (Other)
  Sender: FDA-Public Use
  Company Number: IT-ROCHE-2451022

PATIENT
  Age: 75 Year
  Sex: Male

DRUGS (1)
  1. PIRFENIDONE. [Suspect]
     Active Substance: PIRFENIDONE
     Indication: IDIOPATHIC PULMONARY FIBROSIS
     Route: 048
     Dates: start: 20190424, end: 20191002

REACTIONS (3)
  - Pruritus [Unknown]
  - Erectile dysfunction [Unknown]
  - Rash [Unknown]

NARRATIVE: CASE EVENT DATE: 20190820
